FAERS Safety Report 24113897 (Version 4)
Quarter: 2025Q2

REPORT INFORMATION
  Report Type: Spontaneous
  Country: US (occurrence: US)
  Receive Date: 20240720
  Receipt Date: 20250512
  Transmission Date: 20250717
  Serious: Yes (Other)
  Sender: GLAXOSMITHKLINE
  Company Number: US-GSKCCFUS-Case-02053749_AE-113680

PATIENT

DRUGS (3)
  1. NUCALA [Suspect]
     Active Substance: MEPOLIZUMAB
     Indication: Lung disorder
     Route: 058
     Dates: start: 20240625
  2. NUCALA [Suspect]
     Active Substance: MEPOLIZUMAB
     Indication: Cough
  3. NUCALA [Suspect]
     Active Substance: MEPOLIZUMAB
     Indication: Product used for unknown indication

REACTIONS (9)
  - Neuropathy peripheral [Not Recovered/Not Resolved]
  - Pruritus [Recovered/Resolved]
  - Burning sensation [Unknown]
  - Blister [Unknown]
  - Fatigue [Unknown]
  - Arthralgia [Unknown]
  - Back pain [Unknown]
  - Fall [Unknown]
  - Off label use [Unknown]

NARRATIVE: CASE EVENT DATE: 20240601
